FAERS Safety Report 7999439-7 (Version None)
Quarter: 2011Q4

REPORT INFORMATION
  Report Type: 
  Country: None (occurrence: None)
  Receive Date: 20111221
  Receipt Date: 20111207
  Transmission Date: 20120403
  Serious: Yes (Hospitalization, Other)
  Sender: FDA-Public Use
  Company Number: DE-PFIZER INC-2011132319

PATIENT
  Age: 77 Year
  Sex: Female

DRUGS (4)
  1. RAMIPRIL [Suspect]
     Indication: HYPERTENSION
     Dosage: 2.5 MG, UNK
     Route: 048
     Dates: start: 20090101, end: 20110527
  2. LEVOTHYROXINE [Concomitant]
     Dosage: UNK, AS NEEDED
  3. ZINC GLUCONATE [Suspect]
     Indication: PROPHYLAXIS
     Dosage: 1 DF, 3X/DAY
     Route: 048
     Dates: start: 20110510, end: 20110524
  4. IBUPROFEN [Concomitant]
     Dosage: UNK, AS NEEDED

REACTIONS (6)
  - DIARRHOEA [None]
  - ANOSMIA [None]
  - CIRCULATORY COLLAPSE [None]
  - AGEUSIA [None]
  - RESPIRATORY TRACT INFECTION [None]
  - DYSGEUSIA [None]
